FAERS Safety Report 24539638 (Version 1)
Quarter: 2024Q4

REPORT INFORMATION
  Report Type: Spontaneous
  Country: US (occurrence: None)
  Receive Date: 20241022
  Receipt Date: 20241022
  Transmission Date: 20250115
  Serious: Yes (Hospitalization)
  Sender: Public
  Company Number: None

PATIENT
  Age: 79 Year
  Sex: Male

DRUGS (1)
  1. EMPAGLIFLOZIN [Suspect]
     Active Substance: EMPAGLIFLOZIN
     Indication: Diabetes mellitus
     Dosage: FREQUENCY : DAILY;?
     Route: 048
     Dates: end: 20240615

REACTIONS (5)
  - Encephalopathy [None]
  - Decreased appetite [None]
  - Refusal of treatment by patient [None]
  - Staphylococcal bacteraemia [None]
  - Urinary tract infection [None]

NARRATIVE: CASE EVENT DATE: 20240615
